FAERS Safety Report 4463841-0 (Version None)
Quarter: 2004Q3

REPORT INFORMATION
  Report Type: 
  Country: None (occurrence: None)
  Receive Date: 20040929
  Receipt Date: 20040914
  Transmission Date: 20050211
  Serious: No
  Sender: FDA-Public Use
  Company Number: 2004AP04577

PATIENT
  Age: 67 Year
  Sex: Female

DRUGS (23)
  1. OMEPRAL [Suspect]
     Indication: REFLUX OESOPHAGITIS
     Dosage: 10 MG DAILY PO
     Route: 048
     Dates: start: 20040428, end: 20040520
  2. OMEPRAL [Suspect]
     Indication: REFLUX OESOPHAGITIS
     Dosage: 20 MG DAILY PO
     Route: 048
     Dates: start: 20040521, end: 20040804
  3. URINORM [Concomitant]
  4. SPIROPENT [Concomitant]
  5. MUCODYNE [Concomitant]
  6. BUP-4 [Concomitant]
  7. CHOREITOU [Concomitant]
  8. THEO-DUR [Concomitant]
  9. ALLEGRA [Concomitant]
  10. ISODINE [Concomitant]
  11. ROCALTROL [Concomitant]
  12. MYONAL [Concomitant]
  13. SELBEX [Concomitant]
  14. CYTOTEC [Concomitant]
  15. INDOMETHACIN [Concomitant]
  16. FEROTYM [Concomitant]
  17. BEAUCY S [Concomitant]
  18. ALLOZYM [Concomitant]
  19. IPSILON [Concomitant]
  20. TRANSAMIN [Concomitant]
  21. TRIMPUS [Concomitant]
  22. ANTOBRON [Concomitant]
  23. RULID [Concomitant]

REACTIONS (3)
  - ALANINE AMINOTRANSFERASE INCREASED [None]
  - ASPARTATE AMINOTRANSFERASE INCREASED [None]
  - RHABDOMYOLYSIS [None]
